FAERS Safety Report 14021291 (Version 2)
Quarter: 2017Q4

REPORT INFORMATION
  Report Type: Spontaneous
  Country: US (occurrence: US)
  Receive Date: 20170928
  Receipt Date: 20171212
  Transmission Date: 20180321
  Serious: No
  Sender: FDA-Public Use
  Company Number: US-ROCHE-GNE315937

PATIENT
  Sex: Female

DRUGS (2)
  1. ZYLET [Suspect]
     Active Substance: LOTEPREDNOL ETABONATE\TOBRAMYCIN
     Indication: PRODUCT USED FOR UNKNOWN INDICATION
     Route: 065
  2. LUCENTIS [Suspect]
     Active Substance: RANIBIZUMAB
     Indication: NEOVASCULAR AGE-RELATED MACULAR DEGENERATION
     Dosage: UNK
     Route: 050
     Dates: start: 200610

REACTIONS (5)
  - Photophobia [Unknown]
  - Eye irritation [Recovering/Resolving]
  - Eye pain [Unknown]
  - Visual impairment [Unknown]
  - Eye swelling [Unknown]

NARRATIVE: CASE EVENT DATE: 20110308
